FAERS Safety Report 8884364 (Version 9)
Quarter: 2015Q1

REPORT INFORMATION
  Report Type: Spontaneous
  Country: US (occurrence: US)
  Receive Date: 20121102
  Receipt Date: 20150120
  Transmission Date: 20150721
  Serious: Yes (Hospitalization, Other)
  Sender: FDA-Public Use
  Company Number: US-009507513-1210USA010416

PATIENT
  Sex: Female
  Weight: 55.33 kg

DRUGS (3)
  1. ALENDRONATE SODIUM. [Suspect]
     Active Substance: ALENDRONATE SODIUM
     Indication: OSTEOPOROSIS
     Dosage: 70 MG, QW
     Route: 048
     Dates: start: 200109, end: 2008
  2. ALENDRONATE SODIUM. [Suspect]
     Active Substance: ALENDRONATE SODIUM
     Dosage: 70 MG, QW
     Route: 048
     Dates: start: 2008, end: 2010
  3. FOSAMAX [Suspect]
     Active Substance: ALENDRONATE SODIUM
     Indication: OSTEOPOROSIS
     Dosage: 70 MG, QW
     Route: 048
     Dates: start: 200109, end: 2008

REACTIONS (16)
  - Low turnover osteopathy [Unknown]
  - Vertebroplasty [Unknown]
  - Lumbar spinal stenosis [Unknown]
  - Fall [Unknown]
  - Fall [Unknown]
  - Impaired healing [Unknown]
  - Herpes zoster [Unknown]
  - Ecchymosis [Unknown]
  - Abdominal tenderness [Unknown]
  - Squamous cell carcinoma of skin [Unknown]
  - Elbow operation [Unknown]
  - Cyst removal [Unknown]
  - Spinal compression fracture [Unknown]
  - Femur fracture [Unknown]
  - Intramedullary rod insertion [Unknown]
  - Underweight [Unknown]

NARRATIVE: CASE EVENT DATE: 20011116
